FAERS Safety Report 5942127-9 (Version None)
Quarter: 2008Q4

REPORT INFORMATION
  Report Type: 
  Country: None (occurrence: None)
  Receive Date: 20081031
  Receipt Date: 20081017
  Transmission Date: 20090506
  Serious: Yes (Other)
  Sender: FDA-Public Use
  Company Number: 233084J08USA

PATIENT
  Age: 22 Year
  Sex: Female
  Weight: 84 kg

DRUGS (3)
  1. REBIF [Suspect]
     Indication: MULTIPLE SCLEROSIS
     Dosage: 44 MCG, 3 IN 1 WEEKS, SUBCUTANEOUS
     Route: 058
     Dates: start: 20061117
  2. TOPAMAX [Concomitant]
  3. DEPAKOTE [Concomitant]

REACTIONS (4)
  - CONVULSION [None]
  - GRAND MAL CONVULSION [None]
  - INJECTION SITE REACTION [None]
  - MULTIPLE SCLEROSIS [None]
